FAERS Safety Report 22080104 (Version 1)
Quarter: 2023Q1

REPORT INFORMATION
  Report Type: Spontaneous
  Country: US (occurrence: US)
  Receive Date: 20230309
  Receipt Date: 20230309
  Transmission Date: 20230418
  Serious: No
  Sender: FDA-Public Use
  Company Number: US-BAYER-2023A030652

PATIENT
  Sex: Male

DRUGS (1)
  1. KERENDIA [Suspect]
     Active Substance: FINERENONE

REACTIONS (3)
  - Fatigue [None]
  - Weight decreased [None]
  - Dysgeusia [None]
